FAERS Safety Report 20616836 (Version 1)
Quarter: 2022Q1

REPORT INFORMATION
  Report Type: Spontaneous
  Country: US (occurrence: None)
  Receive Date: 20220318
  Receipt Date: 20220318
  Transmission Date: 20220423
  Serious: Yes (Death)
  Sender: FDA-Public Use
  Company Number: None

PATIENT
  Sex: Male
  Weight: 73.8 kg

DRUGS (14)
  1. PROMACTA [Suspect]
     Active Substance: ELTROMBOPAG OLAMINE
     Indication: Immune thrombocytopenia
     Dosage: FREQUENCY : DAILY;?
     Route: 048
  2. ATORVASTATIN CALCIUM [Concomitant]
     Active Substance: ATORVASTATIN CALCIUM
  3. KLOR-CON [Concomitant]
     Active Substance: POTASSIUM CHLORIDE
  4. FOLIC ACID [Concomitant]
     Active Substance: FOLIC ACID
  5. SELENIUM YEAST [Concomitant]
  6. VITAMIN E [Concomitant]
     Active Substance: .ALPHA.-TOCOPHEROL
  7. FERROUS GLUCONATE [Concomitant]
     Active Substance: FERROUS GLUCONATE
  8. DEXAMETHASONE [Concomitant]
     Active Substance: DEXAMETHASONE
  9. ELTROMBOPAG [Concomitant]
     Active Substance: ELTROMBOPAG
  10. DONEPEZIL HYDROCHLORIDE [Concomitant]
     Active Substance: DONEPEZIL HYDROCHLORIDE
  11. LISINOPRIL [Concomitant]
     Active Substance: LISINOPRIL
  12. Melatonin ER [Concomitant]
  13. risperiDONE Oral Tablet 0.25 MG [Concomitant]
  14. traZODone HCl Oral Tablet 50 MG [Concomitant]

REACTIONS (1)
  - Death [None]
